FAERS Safety Report 11926724 (Version 1)
Quarter: 2016Q1

REPORT INFORMATION
  Report Type: Spontaneous
  Country: US (occurrence: None)
  Receive Date: 20160115
  Receipt Date: 20160115
  Transmission Date: 20160526
  Serious: No
  Sender: FDA-Public Use
  Company Number: None

PATIENT
  Age: 62 Year
  Sex: Male

DRUGS (2)
  1. RIBAVIRIN. [Suspect]
     Active Substance: RIBAVIRIN
     Indication: HEPATITIS C
     Dosage: 400 MG, AM PO
     Dates: start: 20150902, end: 20150915
  2. LEDIPASVIR/SOFOSBUVIR [Suspect]
     Active Substance: LEDIPASVIR\SOFOSBUVIR
     Indication: HEPATITIS C
     Dosage: 90/400 MG, EVERY DAY, PO
     Dates: start: 20150902, end: 20150915

REACTIONS (3)
  - Abdominal distension [None]
  - Penile swelling [None]
  - Scrotal swelling [None]

NARRATIVE: CASE EVENT DATE: 20150609
